FAERS Safety Report 4571843-9 (Version None)
Quarter: 2005Q1

REPORT INFORMATION
  Report Type: 
  Country: None (occurrence: None)
  Receive Date: 20050207
  Receipt Date: 20050202
  Transmission Date: 20050727
  Serious: Yes (Death)
  Sender: FDA-Public Use
  Company Number: PHEH2005US01568

PATIENT
  Age: 14 Year
  Sex: Male

DRUGS (2)
  1. TRILEPTAL [Suspect]
     Indication: EPILEPSY
     Dosage: 300 MG, QD
     Route: 048
     Dates: start: 20030101
  2. TRILEPTAL [Suspect]
     Dosage: 900 MG, QD
     Route: 048
     Dates: start: 20030101, end: 20031017

REACTIONS (3)
  - COMPLETED SUICIDE [None]
  - CONFUSIONAL STATE [None]
  - PSYCHOTIC DISORDER [None]
